FAERS Safety Report 13356570 (Version 1)
Quarter: 2017Q1

REPORT INFORMATION
  Report Type: Spontaneous
  Country: CH (occurrence: CH)
  Receive Date: 20170321
  Receipt Date: 20170321
  Transmission Date: 20170429
  Serious: Yes (Other)
  Sender: FDA-Public Use
  Company Number: CH-SUNOVION-2017SUN000807

PATIENT

DRUGS (2)
  1. LATUDA [Suspect]
     Active Substance: LURASIDONE HYDROCHLORIDE
     Indication: SCHIZOAFFECTIVE DISORDER
     Dosage: 40 MG, UNK
     Route: 048
  2. LATUDA [Suspect]
     Active Substance: LURASIDONE HYDROCHLORIDE
     Dosage: 80 MG, UNK
     Route: 048

REACTIONS (8)
  - Schizoaffective disorder [Not Recovered/Not Resolved]
  - Agitation [Unknown]
  - Gestational diabetes [Unknown]
  - Off label use [Unknown]
  - Pregnancy [Recovered/Resolved]
  - Indifference [Unknown]
  - Drug ineffective for unapproved indication [Unknown]
  - Dysphoria [Unknown]
